FAERS Safety Report 4580976-2 (Version None)
Quarter: 2005Q1

REPORT INFORMATION
  Report Type: 
  Country: None (occurrence: None)
  Receive Date: 20050214
  Receipt Date: 20040709
  Transmission Date: 20050727
  Serious: No
  Sender: FDA-Public Use
  Company Number: US-GLAXOSMITHKLINE-A0517690A

PATIENT
  Age: 59 Year
  Sex: Female

DRUGS (2)
  1. LAMICTAL [Suspect]
     Indication: BIPOLAR DISORDER
     Dosage: 100MG TWICE PER DAY
     Route: 048
  2. EFFEXOR [Suspect]
     Indication: ILL-DEFINED DISORDER

REACTIONS (3)
  - RASH [None]
  - SWELLING FACE [None]
  - SWOLLEN TONGUE [None]
